FAERS Safety Report 7699471-7 (Version None)
Quarter: 2011Q3

REPORT INFORMATION
  Report Type: 
  Country: None (occurrence: None)
  Receive Date: 20110820
  Receipt Date: 20101203
  Transmission Date: 20111222
  Serious: No
  Sender: FDA-Public Use
  Company Number: US-ALLERGAN-1015665US

PATIENT
  Age: 68 Year
  Sex: Female

DRUGS (3)
  1. SANCTURA XR [Suspect]
     Indication: INCONTINENCE
     Dosage: 60 MG, QD
     Route: 048
     Dates: start: 20100701, end: 20100901
  2. SANCTURA XR [Suspect]
     Indication: NOCTURIA
  3. BIOSTALIC [Concomitant]
     Dosage: UNK
     Dates: start: 20100701

REACTIONS (1)
  - DERMATITIS BULLOUS [None]
